FAERS Safety Report 8928283 (Version 5)
Quarter: 2013Q4

REPORT INFORMATION
  Report Type: Spontaneous
  Country: US (occurrence: US)
  Receive Date: 20121128
  Receipt Date: 20131127
  Transmission Date: 20140711
  Serious: Yes (Life-Threatening, Other)
  Sender: FDA-Public Use
  Company Number: US-BIOGENIDEC-2012BI054297

PATIENT
  Sex: Female

DRUGS (1)
  1. TYSABRI [Suspect]
     Indication: MULTIPLE SCLEROSIS
     Route: 042
     Dates: start: 20110301

REACTIONS (4)
  - Benign neoplasm of thyroid gland [Recovered/Resolved]
  - Thyroid cancer [Unknown]
  - Pain [Not Recovered/Not Resolved]
  - Cystitis [Recovered/Resolved]
